FAERS Safety Report 14899454 (Version 4)
Quarter: 2019Q4

REPORT INFORMATION
  Report Type: Spontaneous
  Country: BR (occurrence: BR)
  Receive Date: 20180516
  Receipt Date: 20191118
  Transmission Date: 20200122
  Serious: Yes (Hospitalization, Other)
  Sender: FDA-Public Use
  Company Number: BR-ALEXION PHARMACEUTICALS INC.-A201805767

PATIENT
  Age: 37 Year
  Sex: Male
  Weight: 70 kg

DRUGS (2)
  1. SOLIRIS [Suspect]
     Active Substance: ECULIZUMAB
     Dosage: 900 MG, Q2W
     Route: 042
     Dates: start: 20150414
  2. SOLIRIS [Suspect]
     Active Substance: ECULIZUMAB
     Indication: PAROXYSMAL NOCTURNAL HAEMOGLOBINURIA
     Dosage: 600 MG, QW
     Route: 042
     Dates: start: 20150317, end: 20150407

REACTIONS (7)
  - Hepatic cirrhosis [Unknown]
  - Pyrexia [Unknown]
  - Urinary tract infection [Unknown]
  - Inappropriate schedule of product administration [Recovered/Resolved]
  - Haemoglobin decreased [Unknown]
  - Cholecystitis [Unknown]
  - Dysuria [Unknown]
